FAERS Safety Report 6053365-1 (Version None)
Quarter: 2009Q1

REPORT INFORMATION
  Report Type: 
  Country: None (occurrence: None)
  Receive Date: 20090122
  Receipt Date: 20090105
  Transmission Date: 20090719
  Serious: Yes (Other)
  Sender: FDA-Public Use
  Company Number: HECT-1000036

PATIENT
  Age: 53 Year
  Sex: Male

DRUGS (2)
  1. HECTOROL [Suspect]
     Indication: HYPERPARATHYROIDISM SECONDARY
     Dosage: 6 MCG, 2X/W, INTRAVENOUS 4 MCG, 2X/W, INTRAVENOUS
     Route: 042
     Dates: start: 20070101, end: 20070701
  2. HECTOROL [Suspect]
     Indication: HYPERPARATHYROIDISM SECONDARY
     Dosage: 6 MCG, 2X/W, INTRAVENOUS 4 MCG, 2X/W, INTRAVENOUS
     Route: 042
     Dates: start: 20081101

REACTIONS (2)
  - LIP SWELLING [None]
  - RESPIRATORY DISORDER [None]
